FAERS Safety Report 7177892-9 (Version None)
Quarter: 2010Q4

REPORT INFORMATION
  Report Type: 
  Country: None (occurrence: None)
  Receive Date: 20101220
  Receipt Date: 20101209
  Transmission Date: 20110411
  Serious: Yes (Other)
  Sender: FDA-Public Use
  Company Number: GB-ASTRAZENECA-2010SE58547

PATIENT

DRUGS (1)
  1. MARCAINE [Suspect]
     Route: 037

REACTIONS (1)
  - DRUG EFFECT DECREASED [None]
